FAERS Safety Report 6553006-0 (Version None)
Quarter: 2010Q1

REPORT INFORMATION
  Report Type: 
  Country: None (occurrence: None)
  Receive Date: 20100127
  Receipt Date: 20100121
  Transmission Date: 20100710
  Serious: Yes (Hospitalization)
  Sender: FDA-Public Use
  Company Number: US-BIOGENIDEC-2010BI002248

PATIENT
  Age: 45 Year
  Sex: Female
  Weight: 56 kg

DRUGS (2)
  1. AVONEX [Suspect]
     Indication: MULTIPLE SCLEROSIS
     Route: 030
     Dates: start: 19960701, end: 20030101
  2. AVONEX [Suspect]
     Route: 030
     Dates: start: 20030101

REACTIONS (5)
  - CHEST PAIN [None]
  - COGNITIVE DISORDER [None]
  - MULTIPLE SCLEROSIS RELAPSE [None]
  - MYOCARDIAL INFARCTION [None]
  - NECK PAIN [None]
